FAERS Safety Report 4934936-X (Version None)
Quarter: 2006Q1

REPORT INFORMATION
  Report Type: 
  Country: None (occurrence: None)
  Receive Date: 20060303
  Receipt Date: 20060303
  Transmission Date: 20060701
  Serious: Yes (Life-Threatening, Other)
  Sender: FDA-Public Use
  Company Number: None

PATIENT
  Age: 57 Year
  Sex: Male
  Weight: 81.6475 kg

DRUGS (1)
  1. FUROSEMIDE [Suspect]
     Indication: HERPES SIMPLEX
     Dosage: 40 MG  QD  PO
     Route: 048
     Dates: start: 20060301, end: 20060302

REACTIONS (8)
  - DIZZINESS [None]
  - DRUG DISPENSING ERROR [None]
  - HEADACHE [None]
  - HEART RATE INCREASED [None]
  - MEDICATION ERROR [None]
  - POLLAKIURIA [None]
  - THIRST [None]
  - WRONG DRUG ADMINISTERED [None]
